FAERS Safety Report 7767957-2 (Version None)
Quarter: 2011Q3

REPORT INFORMATION
  Report Type: 
  Country: None (occurrence: None)
  Receive Date: 20110922
  Receipt Date: 20100412
  Transmission Date: 20111222
  Serious: Yes (Hospitalization)
  Sender: FDA-Public Use
  Company Number: US-ASTRAZENECA-2009SE13343

PATIENT
  Age: 14470 Day
  Sex: Male

DRUGS (3)
  1. SEROQUEL [Suspect]
     Route: 048
     Dates: start: 20050325
  2. ABILIFY [Concomitant]
     Dates: start: 20070606
  3. GLYBURIDE [Concomitant]
     Route: 048
     Dates: start: 20070606

REACTIONS (3)
  - TYPE 2 DIABETES MELLITUS [None]
  - VISION BLURRED [None]
  - HYPOGLYCAEMIA [None]
